FAERS Safety Report 10301965 (Version 1)
Quarter: 2014Q3

REPORT INFORMATION
  Report Type: Spontaneous
  Country: PL (occurrence: None)
  Receive Date: 20140709
  Receipt Date: 20140709
  Transmission Date: 20150326
  Serious: Yes (Disabling)
  Sender: FDA-Public Use
  Company Number: SP07987

PATIENT
  Age: 43 Year
  Sex: Female

DRUGS (1)
  1. XIFAXAN [Suspect]
     Active Substance: RIFAXIMIN
     Indication: SMALL INTESTINAL BACTERIAL OVERGROWTH
     Dosage: 2 DF 3 IN 1 D
     Dates: start: 20130902, end: 20130909

REACTIONS (1)
  - Pseudomembranous colitis [None]

NARRATIVE: CASE EVENT DATE: 201309
